FAERS Safety Report 6013244-2 (Version None)
Quarter: 2008Q4

REPORT INFORMATION
  Report Type: 
  Country: None (occurrence: None)
  Receive Date: 20081219
  Receipt Date: 20081212
  Transmission Date: 20090506
  Serious: Yes (Death)
  Sender: FDA-Public Use
  Company Number: GB-AVENTIS-200821657GDDC

PATIENT
  Age: 70 Year
  Weight: 56 kg

DRUGS (5)
  1. RIFINAH [Suspect]
     Indication: TUBERCULOSIS
     Dosage: DOSE: 300/450
     Route: 048
     Dates: start: 20081106, end: 20081127
  2. STREPTOMYCIN [Suspect]
     Indication: TUBERCULOSIS
     Route: 030
     Dates: start: 20081108, end: 20081130
  3. ETHAMBUTOL HYDROCHLORIDE [Concomitant]
  4. PYRAZINAMIDE [Concomitant]
  5. PYRIDOXINE HCL [Concomitant]

REACTIONS (1)
  - TOXIC EPIDERMAL NECROLYSIS [None]
